FAERS Safety Report 6966887-3 (Version None)
Quarter: 2010Q3

REPORT INFORMATION
  Report Type: 
  Country: None (occurrence: None)
  Receive Date: 20100906
  Receipt Date: 20100831
  Transmission Date: 20110219
  Serious: Yes (Other)
  Sender: FDA-Public Use
  Company Number: PHHO2010DE09851

PATIENT
  Sex: Female
  Weight: 66 kg

DRUGS (5)
  1. ZOLEDRONATE T29581+SOLINJ+BM [Suspect]
     Indication: BREAST CANCER
     Dosage: 3.5MG
     Route: 042
     Dates: start: 20090415
  2. ZOLEDRONATE T29581+SOLINJ+BM [Suspect]
     Dosage: 3.5MG
     Route: 042
     Dates: start: 20100310
  3. LYRICA [Concomitant]
  4. ORTOTON [Concomitant]
  5. PANTOPRAZOLE SODIUM [Concomitant]

REACTIONS (7)
  - GINGIVAL ERYTHEMA [None]
  - IMPAIRED HEALING [None]
  - OSTEONECROSIS OF JAW [None]
  - PAIN [None]
  - SURGERY [None]
  - SWELLING [None]
  - TOOTH EXTRACTION [None]
